FAERS Safety Report 9625201 (Version 1)
Quarter: 2013Q4

REPORT INFORMATION
  Report Type: Not Available
  Country: US (occurrence: US)
  Receive Date: 20131016
  Receipt Date: 20131016
  Transmission Date: 20140711
  Serious: Yes (Hospitalization, Other)
  Sender: FDA-Public Use
  Company Number: US-LUPIN PHARMACEUTICALS INC.-E2B_00001338

PATIENT
  Age: 49 Year
  Sex: Male
  Weight: 94.43 kg

DRUGS (2)
  1. LISINOPRIL AND HYDROCHLOROTHIAZIDE TABLETS USP 10MG/12.5 MG [Suspect]
     Indication: HYPERTENSION
     Dates: start: 2013, end: 20130704
  2. ATENOLOL [Concomitant]
     Indication: HYPERTENSION

REACTIONS (5)
  - Pseudocyst [Recovered/Resolved]
  - Hypoaesthesia [Recovered/Resolved]
  - Loss of consciousness [Recovered/Resolved]
  - Pancreatitis [Recovered/Resolved]
  - Weight decreased [Unknown]
